FAERS Safety Report 13190040 (Version 3)
Quarter: 2019Q4

REPORT INFORMATION
  Report Type: Report from Study
  Country: JP (occurrence: JP)
  Receive Date: 20170206
  Receipt Date: 20191008
  Transmission Date: 20200122
  Serious: Yes (Hospitalization)
  Sender: FDA-Public Use
  Company Number: JP-PFIZER INC-2017051273

PATIENT
  Age: 62 Year
  Sex: Female

DRUGS (10)
  1. ZIPRASIDONE HCL [Suspect]
     Active Substance: ZIPRASIDONE HYDROCHLORIDE
     Dosage: 80 MG, DAILY
     Route: 048
     Dates: start: 20161102, end: 20161108
  2. AMLODIPINE BESILATE [Concomitant]
     Active Substance: AMLODIPINE BESYLATE
     Indication: HYPERTENSION
     Dosage: 5 MG, DAILY
     Route: 048
  3. KETOPROFEN. [Concomitant]
     Active Substance: KETOPROFEN
     Indication: OSTEOARTHRITIS
     Dosage: 60 MG, UNK
     Route: 061
  4. CROTAMITON [Concomitant]
     Active Substance: CROTAMITON
     Indication: MILIARIA
     Dosage: UNKNOWN (PROPER DOSE; AS NEEDED)
     Route: 061
  5. OLMESARTAN MEDOXOMIL. [Concomitant]
     Active Substance: OLMESARTAN MEDOXOMIL
     Indication: HYPERTENSION
     Dosage: 20 MG, DAILY
     Route: 048
  6. ZIPRASIDONE HCL [Suspect]
     Active Substance: ZIPRASIDONE HYDROCHLORIDE
     Dosage: 160 MG, DAILY
     Route: 048
     Dates: start: 20161116, end: 20170123
  7. CAMPHOR/DIPHENHYDRAMINE HYDROCHLORIDE/MENTHOL/METHYL SALICYLATE [Concomitant]
     Indication: OSTEOARTHRITIS
     Dosage: UNKNOWN (PROPER DOSE; AS NEEDED)
     Route: 061
     Dates: start: 20160816
  8. SODIUM PICOSULFATE [Concomitant]
     Active Substance: SODIUM PICOSULFATE
     Indication: CONSTIPATION
     Dosage: UNKNOWN (PROPER DOSE; AS NEEDED)
     Route: 048
     Dates: start: 20161014
  9. ZIPRASIDONE HCL [Suspect]
     Active Substance: ZIPRASIDONE HYDROCHLORIDE
     Indication: SCHIZOPHRENIA
     Dosage: 40 MG, DAILY (TWO CAPSULES 2X/DAY, MORNING AND EVENING)
     Route: 048
     Dates: start: 20161027, end: 20161101
  10. ZIPRASIDONE HCL [Suspect]
     Active Substance: ZIPRASIDONE HYDROCHLORIDE
     Dosage: 120 MG, DAILY
     Route: 048
     Dates: start: 20161109, end: 20161115

REACTIONS (1)
  - Pulmonary oedema [Recovering/Resolving]

NARRATIVE: CASE EVENT DATE: 20170124
